FAERS Safety Report 18108231 (Version 1)
Quarter: 2020Q3

REPORT INFORMATION
  Report Type: Spontaneous
  Country: US (occurrence: US)
  Receive Date: 20200804
  Receipt Date: 20200804
  Transmission Date: 20201103
  Serious: Yes (Hospitalization)
  Sender: FDA-Public Use
  Company Number: None

PATIENT
  Age: 67 Year
  Sex: Female
  Weight: 84.7 kg

DRUGS (3)
  1. LEUCOVORIN CALCIUM. [Suspect]
     Active Substance: LEUCOVORIN CALCIUM
     Dates: end: 20200713
  2. ELOXATIN [Suspect]
     Active Substance: OXALIPLATIN
     Dates: end: 20200713
  3. 5?FLUOROURACIL (5?FU) (19893) [Suspect]
     Active Substance: FLUOROURACIL
     Dates: end: 20200713

REACTIONS (5)
  - Alanine aminotransferase increased [None]
  - Blood alkaline phosphatase increased [None]
  - Neutropenia [None]
  - Diarrhoea [None]
  - Aspartate aminotransferase increased [None]

NARRATIVE: CASE EVENT DATE: 20200723
